FAERS Safety Report 15675043 (Version 5)
Quarter: 2018Q4

REPORT INFORMATION
  Report Type: Spontaneous
  Country: US (occurrence: US)
  Receive Date: 20181130
  Receipt Date: 20181219
  Transmission Date: 20190205
  Serious: No
  Sender: FDA-Public Use
  Company Number: US-PFIZER INC-2018480294

PATIENT
  Sex: Male
  Weight: 103 kg

DRUGS (1)
  1. NEURONTIN [Suspect]
     Active Substance: GABAPENTIN
     Indication: HYPOAESTHESIA
     Dosage: 3600 MG, DAILY (TWO AT BREAKFAST, TWO AT LUNCH AND TWO AT SUPPER, NOT SURE)

REACTIONS (7)
  - Weight decreased [Unknown]
  - Memory impairment [Unknown]
  - Tooth loss [Unknown]
  - Frequent bowel movements [Unknown]
  - Dizziness [Unknown]
  - Product use in unapproved indication [Unknown]
  - Gait disturbance [Unknown]
